FAERS Safety Report 7394031-X (Version None)
Quarter: 2011Q2

REPORT INFORMATION
  Report Type: 
  Country: None (occurrence: None)
  Receive Date: 20110405
  Receipt Date: 20101112
  Transmission Date: 20111010
  Serious: Yes (Hospitalization, Other)
  Sender: FDA-Public Use
  Company Number: US-AMGEN-KDL435573

PATIENT
  Age: 61 Year
  Sex: Male

DRUGS (8)
  1. DOCETAXEL [Concomitant]
  2. ZOFRAN [Concomitant]
  3. EMEND                              /01627301/ [Concomitant]
  4. NEULASTA [Suspect]
     Indication: CHEMOTHERAPY
     Dosage: 6 MG, UNK
     Dates: start: 20100806
  5. MOTRIN [Concomitant]
  6. DOXORUBICIN HCL [Concomitant]
  7. CYCLOPHOSPHAMIDE [Concomitant]
  8. COMPAZINE [Concomitant]

REACTIONS (1)
  - FEBRILE NEUTROPENIA [None]
